FAERS Safety Report 4905005-X (Version None)
Quarter: 2006Q1

REPORT INFORMATION
  Report Type: 
  Country: None (occurrence: None)
  Receive Date: 20060207
  Receipt Date: 20060207
  Transmission Date: 20060701
  Serious: Yes (Other)
  Sender: FDA-Public Use
  Company Number: None

PATIENT
  Age: 85 Year
  Sex: Male
  Weight: 82.6 kg

DRUGS (1)
  1. CEFTRIAXONE [Suspect]

REACTIONS (2)
  - PRURITUS [None]
  - RASH GENERALISED [None]
